FAERS Safety Report 4762833-1 (Version None)
Quarter: 2005Q3

REPORT INFORMATION
  Report Type: 
  Country: None (occurrence: None)
  Receive Date: 20050906
  Receipt Date: 20050830
  Transmission Date: 20060218
  Serious: Yes (Death)
  Sender: FDA-Public Use
  Company Number: 2005S1008432

PATIENT
  Age: 64 Year
  Sex: Male
  Weight: 90.7194 kg

DRUGS (2)
  1. FENTANYL [Suspect]
     Indication: PAIN
     Dosage: 25 MCG/HR; TDER
     Route: 062
     Dates: end: 20050810
  2. FENTANYL [Suspect]
     Indication: PAIN
     Dosage: 100 MCG/HR; TDER
     Route: 062
     Dates: end: 20050810

REACTIONS (1)
  - DEATH [None]
